FAERS Safety Report 5694055-4 (Version None)
Quarter: 2008Q2

REPORT INFORMATION
  Report Type: 
  Country: None (occurrence: None)
  Receive Date: 20080403
  Receipt Date: 20080327
  Transmission Date: 20081010
  Serious: Yes (Hospitalization)
  Sender: FDA-Public Use
  Company Number: FR-MERCK-0803FRA00067

PATIENT
  Age: 34 Year
  Sex: Female

DRUGS (10)
  1. EMEND [Suspect]
     Indication: PROPHYLAXIS OF NAUSEA AND VOMITING
     Route: 048
     Dates: start: 20070713, end: 20070713
  2. EMEND [Suspect]
     Route: 048
     Dates: start: 20070714, end: 20070715
  3. TRAMADOL HYDROCHLORIDE [Suspect]
     Indication: BACK PAIN
     Route: 042
     Dates: start: 20070713
  4. VANCOMYCIN [Concomitant]
     Route: 042
     Dates: start: 20070711, end: 20070713
  5. HYDROXYZINE HYDROCHLORIDE [Concomitant]
     Route: 048
     Dates: start: 20070713, end: 20070713
  6. DAUNORUBICIN [Concomitant]
     Indication: ACUTE MYELOID LEUKAEMIA
     Route: 042
     Dates: start: 20070713
  7. CYTARABINE [Concomitant]
     Indication: ACUTE MYELOID LEUKAEMIA
     Route: 042
     Dates: start: 20070713
  8. ZOLPIDEM TARTRATE [Concomitant]
     Indication: INSOMNIA
     Route: 048
  9. OMEPRAZOLE [Concomitant]
     Route: 048
  10. LYNESTRENOL [Concomitant]
     Route: 048

REACTIONS (1)
  - URINARY RETENTION [None]
